FAERS Safety Report 4688389-X (Version None)
Quarter: 2005Q2

REPORT INFORMATION
  Report Type: 
  Country: None (occurrence: None)
  Receive Date: 20050610
  Receipt Date: 20050610
  Transmission Date: 20051028
  Serious: Yes (Other)
  Sender: FDA-Public Use
  Company Number: None

PATIENT
  Sex: Female
  Weight: 90.7194 kg

DRUGS (1)
  1. LEVOTHROID [Suspect]
     Dosage: 1 PO QD
     Route: 048

REACTIONS (4)
  - ALOPECIA [None]
  - DRUG EFFECT DECREASED [None]
  - FATIGUE [None]
  - THERAPEUTIC RESPONSE UNEXPECTED WITH DRUG SUBSTITUTION [None]
